FAERS Safety Report 8838768 (Version 2)
Quarter: 2012Q4

REPORT INFORMATION
  Report Type: 
  Country: NL (occurrence: NL)
  Receive Date: 20121013
  Receipt Date: 20121025
  Transmission Date: 20130627
  Serious: No
  Sender: FDA-Public Use
  Company Number: NL-AMGEN-NLDSP2012064468

PATIENT
  Age: 62 Year
  Sex: Male

DRUGS (9)
  1. ARANESP [Suspect]
     Indication: PRODUCT USED FOR UNKNOWN INDICATION
     Dosage: 500 mug, q3wk
     Route: 058
     Dates: start: 20120824
  2. NEULASTA [Suspect]
     Indication: PRODUCT USED FOR UNKNOWN INDICATION
     Dosage: 6 mg, UNK
     Route: 058
  3. PREDNISOLONE [Concomitant]
     Dosage: 5 mg, qd
  4. ACENOCOUMAROL [Concomitant]
  5. COZAAR [Concomitant]
     Dosage: 100 mg, qd
  6. OMEPRAZOLE [Concomitant]
     Dosage: 20 mg, qd
  7. PARACETAMOL [Concomitant]
     Dosage: 500 mg, UNK
  8. FENTANYL [Concomitant]
     Dosage: 25 UNK, UNK
  9. MOVICOLON [Concomitant]
     Dosage: UNK UNK, qd

REACTIONS (2)
  - Back pain [Recovered/Resolved]
  - Hypoaesthesia [Recovered/Resolved]
